FAERS Safety Report 11473749 (Version 1)
Quarter: 2015Q3

REPORT INFORMATION
  Report Type: Spontaneous
  Country: US (occurrence: None)
  Receive Date: 20150908
  Receipt Date: 20150908
  Transmission Date: 20151125
  Serious: Yes (Other)
  Sender: FDA-Public Use
  Company Number: None

PATIENT
  Age: 65 Year
  Sex: Female
  Weight: 72.58 kg

DRUGS (8)
  1. ALPRAZOLEM [Concomitant]
  2. SULFAMETH/TRIMETHOPRIM 800/160 MG TB MFG AMNEAL NDC 53746-0272-05 `` [Suspect]
     Active Substance: SULFAMETHOXAZOLE\TRIMETHOPRIM
     Indication: INFECTION
  3. ZOCOR [Concomitant]
     Active Substance: SIMVASTATIN
  4. MULTI VITAMIN [Concomitant]
     Active Substance: VITAMINS
  5. LO DOSE ASPIRIN [Concomitant]
  6. CALCIUM [Concomitant]
     Active Substance: CALCIUM
  7. HYDROCHLOROTHIAZIDE. [Concomitant]
     Active Substance: HYDROCHLOROTHIAZIDE
  8. TYLENOL [Suspect]
     Active Substance: ACETAMINOPHEN

REACTIONS (1)
  - Drug ineffective [None]

NARRATIVE: CASE EVENT DATE: 20150831
